FAERS Safety Report 9013993 (Version 1)
Quarter: 2013Q1

REPORT INFORMATION
  Report Type: Spontaneous
  Country: US (occurrence: None)
  Receive Date: 20130109
  Receipt Date: 20130109
  Transmission Date: 20140127
  Serious: Yes (Other)
  Sender: FDA-Public Use
  Company Number: None

PATIENT
  Age: 13 Year
  Sex: Female
  Weight: 39.5 kg

DRUGS (1)
  1. STRATTERA [Suspect]
     Indication: ATTENTION DEFICIT/HYPERACTIVITY DISORDER
     Dosage: 60 MG. ONCE A DAY IN MORNING ORAL
     Route: 048

REACTIONS (6)
  - Morbid thoughts [None]
  - Depressed mood [None]
  - Crying [None]
  - Irritability [None]
  - Panic attack [None]
  - Anxiety [None]
